FAERS Safety Report 5242445-6 (Version None)
Quarter: 2007Q1

REPORT INFORMATION
  Report Type: 
  Country: None (occurrence: None)
  Receive Date: 20070214
  Receipt Date: 20070208
  Transmission Date: 20070707
  Serious: Yes (Death, Hospitalization)
  Sender: FDA-Public Use
  Company Number: 15594

PATIENT
  Age: 25 Year
  Sex: Male

DRUGS (16)
  1. PENTOSTATIN [Suspect]
     Indication: LARGE GRANULAR LYMPHOCYTOSIS
     Dosage: 4 MG/M2 WEEKLY IV
     Route: 042
     Dates: start: 20040122
  2. PENTOSTATIN [Suspect]
     Indication: LARGE GRANULAR LYMPHOCYTOSIS
     Dosage: 6 MG/M2 WEEKLY IV
     Route: 042
     Dates: start: 20041122, end: 20041213
  3. CAMPATH [Suspect]
     Indication: LARGE GRANULAR LYMPHOCYTOSIS
     Dosage: 3 MG PER_CYCLE IV
     Route: 042
     Dates: start: 20041122
  4. CAMPATH [Suspect]
     Indication: LARGE GRANULAR LYMPHOCYTOSIS
     Dosage: 10 MG PER_CYCLE IV
     Route: 042
     Dates: start: 20041123
  5. CAMPATH [Suspect]
     Indication: LARGE GRANULAR LYMPHOCYTOSIS
     Dosage: 30 MG TID IV
     Route: 042
     Dates: start: 20041124, end: 20041222
  6. MORPHINE [Concomitant]
  7. VALTREX [Concomitant]
  8. FLAGYL /00012501/. MFR: NOT SPECIFIED [Concomitant]
  9. BACTRIM /00086101/. MFR: NOT SPECIFIED [Concomitant]
  10. LEVAQUIN. MFR: NOT SPECIFIED [Concomitant]
  11. DIFLUCAN. MFR: NOT SPECIFIED [Concomitant]
  12. AMBISOME [Concomitant]
  13. PROCRIT [Concomitant]
  14. NEUPOGEN. MFR: NOT SPECIFIED [Concomitant]
  15. MAGNESIUM [Concomitant]
  16. MS CONTIN. MFR: NOT SPECIFIED [Concomitant]

REACTIONS (5)
  - BACTERAEMIA [None]
  - NEUTROPENIA [None]
  - PNEUMONIA [None]
  - PNEUMONIA NECROTISING [None]
  - SERRATIA INFECTION [None]
